FAERS Safety Report 4976813-4 (Version None)
Quarter: 2006Q1

REPORT INFORMATION
  Report Type: 
  Country: None (occurrence: None)
  Receive Date: 20060221
  Receipt Date: 20050816
  Transmission Date: 20060701
  Serious: Yes (Other)
  Sender: FDA-Public Use
  Company Number: PHEH2005US09152

PATIENT
  Age: 74 Year
  Sex: Female
  Weight: 94.3 kg

DRUGS (1)
  1. DIOVAN [Suspect]
     Indication: HYPERTENSION
     Dosage: SEE IMAGE
     Dates: start: 20050209, end: 20050325

REACTIONS (3)
  - ANGIONEUROTIC OEDEMA [None]
  - RASH [None]
  - SWOLLEN TONGUE [None]
